FAERS Safety Report 6422729-6 (Version None)
Quarter: 2009Q4

REPORT INFORMATION
  Report Type: 
  Country: None (occurrence: None)
  Receive Date: 20091028
  Receipt Date: 20091013
  Transmission Date: 20100525
  Serious: Yes (Death, Hospitalization)
  Sender: FDA-Public Use
  Company Number: 2009-134

PATIENT
  Age: 58 Year
  Sex: Female

DRUGS (5)
  1. FAZACLO ODT [Suspect]
     Indication: SCHIZOPHRENIA
     Dosage: 200 MG DAILY PO
     Route: 048
     Dates: start: 20080101, end: 20091002
  2. INVEGA [Concomitant]
  3. DEPAKOTE [Concomitant]
  4. VITAMIN [Concomitant]
  5. SYNTHROID [Concomitant]

REACTIONS (3)
  - ARTHRALGIA [None]
  - CLOSTRIDIUM DIFFICILE COLITIS [None]
  - SEPSIS [None]
